FAERS Safety Report 9798333 (Version 1)
Quarter: 2013Q4

REPORT INFORMATION
  Report Type: Spontaneous
  Country: AR (occurrence: None)
  Receive Date: 20131231
  Receipt Date: 20131231
  Transmission Date: 20140711
  Serious: Yes (Other)
  Sender: FDA-Public Use
  Company Number: VAL_02878_2013

PATIENT
  Sex: 0
  Weight: 3.1 kg

DRUGS (1)
  1. METHYLERGOMETRINE MALEATE (BASOFORTINA -METHYLERGOMETRINE MALEATE) [Suspect]
     Indication: PRODUCT USED FOR UNKNOWN INDICATION
     Dosage: MATERNAL DOSE 0.125 MG
     Route: 064

REACTIONS (3)
  - Maternal drugs affecting foetus [None]
  - Caesarean section [None]
  - Premature baby [None]
